FAERS Safety Report 13992405 (Version 1)
Quarter: 2017Q3

REPORT INFORMATION
  Report Type: Spontaneous
  Country: US (occurrence: US)
  Receive Date: 20170920
  Receipt Date: 20170920
  Transmission Date: 20171128
  Serious: No
  Sender: FDA-Public Use
  Company Number: US-RECKITT BENCKISER HEALTHCARE INT LIMITED-RB-89789-2017

PATIENT
  Age: 75 Year
  Sex: Female

DRUGS (1)
  1. MUCINEX MAXIMUM STRENGTH [Suspect]
     Active Substance: GUAIFENESIN
     Indication: PRODUCT USED FOR UNKNOWN INDICATION
     Dosage: 2400 MG, BID, TWO IN THE MORNING AND TWO AT NIGHT
     Route: 065
     Dates: start: 20170501

REACTIONS (3)
  - Nausea [Unknown]
  - Headache [Unknown]
  - Overdose [Unknown]

NARRATIVE: CASE EVENT DATE: 201705
